FAERS Safety Report 12952927 (Version 1)
Quarter: 2016Q4

REPORT INFORMATION
  Report Type: Spontaneous
  Country: US (occurrence: US)
  Receive Date: 20161117
  Receipt Date: 20161117
  Transmission Date: 20170207
  Serious: Yes (Hospitalization)
  Sender: FDA-Public Use
  Company Number: US-NOVOPROD-512383

PATIENT
  Sex: Male

DRUGS (1)
  1. NOVOLOG [Suspect]
     Active Substance: INSULIN ASPART
     Indication: TYPE 2 DIABETES MELLITUS
     Dosage: 5 U, QID
     Route: 058
     Dates: start: 2007

REACTIONS (3)
  - Product quality issue [Unknown]
  - Blood glucose increased [Not Recovered/Not Resolved]
  - Blood glucose increased [Unknown]
